FAERS Safety Report 11813104 (Version 1)
Quarter: 2015Q4

REPORT INFORMATION
  Report Type: Spontaneous
  Country: US (occurrence: US)
  Receive Date: 20151209
  Receipt Date: 20151209
  Transmission Date: 20160305
  Serious: No
  Sender: FDA-Public Use
  Company Number: US-AMGEN-USASP2015129027

PATIENT
  Age: 70 Year
  Sex: Female

DRUGS (2)
  1. ENBREL [Suspect]
     Active Substance: ETANERCEPT
     Indication: RHEUMATOID ARTHRITIS
     Dosage: 50 MG, QWK
     Route: 065
     Dates: start: 201511
  2. CELEBREX [Concomitant]
     Active Substance: CELECOXIB
     Indication: RHEUMATOID ARTHRITIS
     Dosage: 200 MG, QD
     Dates: start: 2005

REACTIONS (2)
  - Myalgia [Not Recovered/Not Resolved]
  - Groin pain [Not Recovered/Not Resolved]

NARRATIVE: CASE EVENT DATE: 20151118
